FAERS Safety Report 9025079 (Version 1)
Quarter: 2013Q1

REPORT INFORMATION
  Report Type: Spontaneous
  Country: GB (occurrence: GB)
  Receive Date: 20130121
  Receipt Date: 20130121
  Transmission Date: 20140127
  Serious: Yes (Life-Threatening, Hospitalization)
  Sender: FDA-Public Use
  Company Number: GB-TEVA-380114ISR

PATIENT
  Age: 91 Year
  Sex: 0

DRUGS (21)
  1. DOXYCYCLINE [Suspect]
     Indication: CHRONIC OBSTRUCTIVE PULMONARY DISEASE
     Route: 048
     Dates: start: 20100804
  2. CIPROFLOXACIN [Suspect]
     Indication: UROSEPSIS
     Route: 041
     Dates: start: 20110324
  3. CIPROFLOXACIN [Suspect]
     Indication: UROSEPSIS
     Route: 048
     Dates: start: 20110325, end: 20110329
  4. FLUCLOXACILLIN [Suspect]
     Route: 048
     Dates: start: 20090710, end: 20090715
  5. ERTAPENEM [Suspect]
     Indication: URINARY TRACT INFECTION
     Dosage: INDICATION: PRESCRIBED FOR E.COLI IN URINE.
     Route: 042
     Dates: start: 20110330, end: 20110331
  6. BENZYLPENICILLIN [Suspect]
     Indication: PNEUMONIA
     Dates: start: 20110218
  7. BENZYLPENICILLIN [Suspect]
     Route: 041
     Dates: start: 20110130
  8. LEVOFLOXACIN [Suspect]
     Indication: PNEUMONIA
     Dates: start: 20110218, end: 20110225
  9. LEVOFLOXACIN [Suspect]
     Indication: RENAL FAILURE ACUTE
     Route: 048
     Dates: start: 20110130, end: 20110206
  10. UNIPHYLLIN CONTINUS [Concomitant]
     Dosage: NAPP PHARMACEUTICALS LTD
     Route: 048
  11. THIAMINE [Concomitant]
     Route: 048
  12. VITAMIN B COMPOUND [Concomitant]
     Route: 048
  13. ADCAL-D3 [Concomitant]
     Dosage: PROSTRAKAN LTD
     Route: 048
  14. IPRATROPIUM BROMIDE [Concomitant]
     Dosage: 500MICROGRAMS/2ML NEBULISER LIQUID
     Route: 050
  15. SALBUTAMOL [Concomitant]
     Dosage: 5MG/2.5ML NEBULISER LIQUID
     Route: 050
  16. PARACETAMOL [Concomitant]
     Dosage: 500MG - 1G QDS AS NEEDED
     Route: 048
  17. QUETIAPINE [Concomitant]
     Route: 048
  18. ATORVASTATIN [Concomitant]
     Route: 048
  19. ASPIRIN [Concomitant]
     Route: 048
  20. SENNA [Concomitant]
     Route: 048
  21. BUMETANIDE [Concomitant]
     Route: 048

REACTIONS (7)
  - Clostridium difficile infection [Recovered/Resolved]
  - Confusional state [Unknown]
  - Dysuria [Unknown]
  - Hypotension [Unknown]
  - Urosepsis [Unknown]
  - Diarrhoea [Unknown]
  - Pneumonia [Unknown]
